FAERS Safety Report 5531491-0 (Version None)
Quarter: 2007Q4

REPORT INFORMATION
  Report Type: 
  Country: None (occurrence: None)
  Receive Date: 20071203
  Receipt Date: 20071128
  Transmission Date: 20080405
  Serious: Yes (Hospitalization)
  Sender: FDA-Public Use
  Company Number: JP-BRISTOL-MYERS SQUIBB COMPANY-14000459

PATIENT
  Age: 69 Year
  Sex: Female

DRUGS (5)
  1. MAXIPIME [Suspect]
     Indication: BRONCHOPNEUMONIA
     Route: 041
     Dates: start: 20070122, end: 20070131
  2. MEROPEN [Concomitant]
     Route: 042
     Dates: start: 20070131, end: 20070206
  3. PAZUCROSS [Concomitant]
     Route: 042
     Dates: start: 20070201, end: 20070209
  4. PEGINTERFERON ALFA-2B [Concomitant]
     Route: 041
     Dates: start: 20060227, end: 20070112
  5. REBETOL [Concomitant]
     Route: 048
     Dates: start: 20060227, end: 20070112

REACTIONS (1)
  - INTERSTITIAL LUNG DISEASE [None]
